FAERS Safety Report 6787706-4 (Version None)
Quarter: 2010Q2

REPORT INFORMATION
  Report Type: 
  Country: None (occurrence: None)
  Receive Date: 20100623
  Receipt Date: 20070801
  Transmission Date: 20101027
  Serious: Yes (Other)
  Sender: FDA-Public Use
  Company Number: US-PFIZER INC-2007048888

PATIENT
  Sex: Male
  Weight: 104.54 kg

DRUGS (6)
  1. SUTENT [Suspect]
     Indication: RENAL CELL CARCINOMA
     Route: 048
     Dates: start: 20060801
  2. ALLOPURINOL [Concomitant]
  3. ATENOLOL [Concomitant]
  4. COLCHICINE [Concomitant]
  5. VITAMIN C [Concomitant]
  6. HOMEOPATHIC PREPARATION [Concomitant]

REACTIONS (10)
  - DIARRHOEA [None]
  - DYSGEUSIA [None]
  - HEADACHE [None]
  - HYPERTENSION [None]
  - NASAL CONGESTION [None]
  - NAUSEA [None]
  - PAIN IN EXTREMITY [None]
  - RASH [None]
  - SKIN IRRITATION [None]
  - WOUND [None]
